FAERS Safety Report 9285514 (Version 5)
Quarter: 2013Q3

REPORT INFORMATION
  Report Type: Spontaneous
  Country: US (occurrence: US)
  Receive Date: 20130513
  Receipt Date: 20130830
  Transmission Date: 20140515
  Serious: No
  Sender: FDA-Public Use
  Company Number: US-PFIZER INC-2013141611

PATIENT
  Age: 67 Year
  Sex: Female

DRUGS (1)
  1. LATANOPROST [Suspect]
     Dosage: UNK
     Route: 047

REACTIONS (4)
  - Wrong technique in drug usage process [Unknown]
  - Incorrect dose administered [Unknown]
  - Mydriasis [Recovered/Resolved]
  - Product quality issue [Unknown]
